FAERS Safety Report 6757037-7 (Version None)
Quarter: 2010Q2

REPORT INFORMATION
  Report Type: 
  Country: None (occurrence: None)
  Receive Date: 20100604
  Receipt Date: 20100527
  Transmission Date: 20101027
  Serious: Yes (Other)
  Sender: FDA-Public Use
  Company Number: US-ABBOTT-10P-163-0648330-00

PATIENT
  Age: 13 Month
  Sex: Male
  Weight: 8.56 kg

DRUGS (2)
  1. RITONAVIR [Suspect]
     Indication: HIV INFECTION
     Route: 048
  2. ATAZANAVIR [Concomitant]
     Indication: HIV INFECTION
     Route: 048
     Dates: start: 20090817, end: 20100517

REACTIONS (1)
  - BLOOD ALKALINE PHOSPHATASE INCREASED [None]
